FAERS Safety Report 8780236 (Version 1)
Quarter: 2012Q4

REPORT INFORMATION
  Report Type: Spontaneous
  Country: US (occurrence: None)
  Receive Date: 20120904
  Receipt Date: 20120904
  Transmission Date: 20130627
  Serious: Yes (Other)
  Sender: FDA-Public Use
  Company Number: None

PATIENT
  Age: 66 Year
  Sex: Female
  Weight: 62.7 kg

DRUGS (2)
  1. IMMUNE GLOBULIN HUMAN [Suspect]
     Indication: PRIMARY IMMUNODEFICIENCY SYNDROME
     Dosage: ONCE, SUBCUTANEOUS INFUSION
     Route: 058
     Dates: start: 20120806
  2. IMMUNE GLOBULIN HUMAN [Suspect]
     Indication: PRIMARY IMMUNODEFICIENCY SYNDROME
     Dosage: SUBCUTANEOUS INFUSION , ONCE
     Route: 058

REACTIONS (4)
  - Oral candidiasis [None]
  - Hypersensitivity [None]
  - Infusion related reaction [None]
  - Blood pressure increased [None]
